FAERS Safety Report 14705495 (Version 3)
Quarter: 2018Q2

REPORT INFORMATION
  Report Type: Spontaneous
  Country: FR (occurrence: FR)
  Receive Date: 20180402
  Receipt Date: 20180618
  Transmission Date: 20180711
  Serious: Yes (Disabling, Other)
  Sender: FDA-Public Use
  Company Number: FR-JNJFOC-20180340009

PATIENT
  Sex: Female
  Weight: 110 kg

DRUGS (2)
  1. XEPLION [Suspect]
     Active Substance: PALIPERIDONE PALMITATE
     Indication: SCHIZOAFFECTIVE DISORDER
     Route: 030
     Dates: start: 20140805, end: 20180221
  2. TEGRETOL [Concomitant]
     Active Substance: CARBAMAZEPINE
     Indication: MOOD SWINGS
     Route: 048
     Dates: start: 20110205

REACTIONS (3)
  - Akinesia [Unknown]
  - Cerebral venous thrombosis [Recovered/Resolved with Sequelae]
  - Basal ganglia haemorrhage [Recovered/Resolved with Sequelae]

NARRATIVE: CASE EVENT DATE: 2018
